FAERS Safety Report 9502908 (Version 1)
Quarter: 2013Q1

REPORT INFORMATION
  Report Type: Spontaneous
  Country: US (occurrence: None)
  Receive Date: 20130225
  Receipt Date: 20130225
  Transmission Date: 20140127
  Serious: No
  Sender: FDA-Public Use
  Company Number: 366453

PATIENT
  Age: 53 Year
  Sex: Female

DRUGS (1)
  1. VICTOZA [Suspect]
     Indication: TYPE 2 DIABETES MELLITUS
     Dosage: 0.6, SUBCUTANEOUS
     Route: 058
     Dates: start: 20121203

REACTIONS (3)
  - Injection site scab [None]
  - Injection site haemorrhage [None]
  - Injection site bruising [None]
